FAERS Safety Report 9264514 (Version 1)
Quarter: 2013Q2

REPORT INFORMATION
  Report Type: Spontaneous
  Country: US (occurrence: US)
  Receive Date: 20130501
  Receipt Date: 20130501
  Transmission Date: 20140414
  Serious: Yes (Death, Hospitalization)
  Sender: FDA-Public Use
  Company Number: US-ROCHE-1204687

PATIENT
  Sex: Female

DRUGS (5)
  1. PEGASYS [Suspect]
     Indication: HEPATITIS C
     Route: 058
     Dates: start: 20120628, end: 20121003
  2. PEGASYS [Suspect]
     Route: 058
     Dates: start: 20121004, end: 20121031
  3. RIBAVIRIN [Suspect]
     Indication: HEPATITIS C
     Route: 048
     Dates: start: 20120628, end: 20120927
  4. RIBAVIRIN [Suspect]
     Route: 048
     Dates: start: 20121004, end: 20121031
  5. TELAPREVIR [Suspect]
     Indication: HEPATITIS C
     Route: 048
     Dates: start: 20120628, end: 20120921

REACTIONS (7)
  - Pneumonia [Fatal]
  - Acute respiratory failure [Fatal]
  - Cardiac failure congestive [Fatal]
  - Septic shock [Fatal]
  - Anaemia [Unknown]
  - Thrombocytopenia [Unknown]
  - Rash [Unknown]
